FAERS Safety Report 24320517 (Version 1)
Quarter: 2024Q3

REPORT INFORMATION
  Report Type: Spontaneous
  Country: GB (occurrence: GB)
  Receive Date: 20240915
  Receipt Date: 20240915
  Transmission Date: 20241016
  Serious: Yes (Other)
  Sender: AUROBINDO
  Company Number: GB-MHRA-TPP26309659C9823503YC1725106012637

PATIENT
  Age: 72 Year
  Sex: Female
  Weight: 78 kg

DRUGS (10)
  1. CLARITHROMYCIN [Suspect]
     Active Substance: CLARITHROMYCIN
     Indication: Ill-defined disorder
     Dosage: 1 DOSAGE FORM, TWO TIMES A DAY (FOR 10 DAYS)
     Route: 065
     Dates: start: 20240830
  2. DIAZEPAM [Concomitant]
     Active Substance: DIAZEPAM
     Indication: Ill-defined disorder
     Dosage: HALF TABLET AS REQUIRED
     Route: 065
     Dates: start: 20240612
  3. CIPROFLOXACIN [Concomitant]
     Active Substance: CIPROFLOXACIN
     Indication: Ill-defined disorder
     Dosage: 1 DOSAGE FORM, TWO TIMES A DAY (FOR 5 DAYS, TO TREA)
     Route: 065
     Dates: start: 20240624
  4. METRONIDAZOLE [Concomitant]
     Active Substance: METRONIDAZOLE
     Indication: Ill-defined disorder
     Dosage: 1 DOSAGE FORM, 3 TIMES A DAY FOR 5 DAYS
     Route: 065
     Dates: start: 20240624
  5. DOXYCYCLINE [Concomitant]
     Active Substance: DOXYCYCLINE\DOXYCYCLINE HYCLATE
     Indication: Ill-defined disorder
     Dosage: 1 DOSAGE FORM, DAILY (FOR 10 DAYS)
     Route: 065
     Dates: start: 20240831
  6. ALBUTEROL [Concomitant]
     Active Substance: ALBUTEROL
     Indication: Ill-defined disorder
     Dosage: 2 DOSAGE FORM, FOUR TIMES/DAY (AS REQUIRED)
     Route: 065
     Dates: start: 20080107
  7. SERETIDE [Concomitant]
     Active Substance: FLUTICASONE PROPIONATE\SALMETEROL XINAFOATE
     Indication: Ill-defined disorder
     Dosage: 2 DOSAGE FORM, TWO TIMES A DAY
     Route: 065
     Dates: start: 20080107
  8. LATANOPROST [Concomitant]
     Active Substance: LATANOPROST
     Indication: Ill-defined disorder
     Dosage: APPLY, ONCE A DAY (PREFERABLY AT NIGHT)
     Route: 065
     Dates: start: 20230123
  9. ANASTROZOLE [Concomitant]
     Active Substance: ANASTROZOLE
     Indication: Ill-defined disorder
     Dosage: 1 DOSAGE FORM, DAILY
     Route: 065
     Dates: start: 20230228
  10. ATORVASTATIN [Concomitant]
     Active Substance: ATORVASTATIN
     Indication: Ill-defined disorder
     Dosage: 1 DOSAGE FORM, ONCE A DAY (AT NIGHT TO LOWER CHOLESTEROL)
     Route: 065
     Dates: start: 20240201

REACTIONS (4)
  - Faeces discoloured [Unknown]
  - Nausea [Recovering/Resolving]
  - Diarrhoea [Recovered/Resolved]
  - Palpitations [Recovered/Resolved]
